FAERS Safety Report 9966207 (Version 1)
Quarter: 2014Q1

REPORT INFORMATION
  Report Type: Report from Study
  Country: US (occurrence: US)
  Receive Date: 20140305
  Receipt Date: 20140305
  Transmission Date: 20141002
  Serious: No
  Sender: FDA-Public Use
  Company Number: US-ABBVIE-13P-163-1122929-00

PATIENT
  Age: 54 Year
  Sex: Male

DRUGS (11)
  1. HUMIRA [Suspect]
     Indication: RHEUMATOID ARTHRITIS
     Dates: start: 20130607
  2. PLAQUENIL [Concomitant]
     Indication: RHEUMATOID ARTHRITIS
  3. GEMFIBROZIL [Concomitant]
     Indication: BLOOD CHOLESTEROL INCREASED
  4. LANSOPRAZOLE [Concomitant]
     Indication: ABDOMINAL DISCOMFORT
     Dosage: 30MG DAILY
  5. ZOLOFT [Concomitant]
     Indication: DEPRESSION
     Dosage: 200MG DAILY
  6. ZOLOFT [Concomitant]
     Indication: ANXIETY
  7. PRAVASTATIN [Concomitant]
     Indication: BLOOD TRIGLYCERIDES INCREASED
     Dosage: 40MG DAILY
  8. OXYCONTIN [Concomitant]
     Indication: PAIN
  9. OXYCODONE [Concomitant]
     Indication: BREAKTHROUGH PAIN
  10. REQUIP [Concomitant]
     Indication: RESTLESS LEGS SYNDROME
  11. TRAZODONE [Concomitant]
     Indication: INSOMNIA
     Dosage: AT NIGHT

REACTIONS (1)
  - Injection site pain [Unknown]
